FAERS Safety Report 6553678-0 (Version None)
Quarter: 2010Q1

REPORT INFORMATION
  Report Type: 
  Country: None (occurrence: None)
  Receive Date: 20100122
  Receipt Date: 20100106
  Transmission Date: 20100710
  Serious: Yes (Other)
  Sender: FDA-Public Use
  Company Number: 2009AC000525

PATIENT
  Age: 54 Year
  Sex: Female

DRUGS (11)
  1. DIGOXIN [Suspect]
     Dosage: 0.125 MG;QD;PO
     Route: 048
  2. AVANDIA [Concomitant]
  3. PLAVIX [Concomitant]
  4. ASPIRIN [Concomitant]
  5. ZOLOFT [Concomitant]
  6. DILEX G [Concomitant]
  7. LORAZEPAM [Concomitant]
  8. ADVAIR DISKUS 100/50 [Concomitant]
  9. CEPHADYN [Concomitant]
  10. TRICOR [Concomitant]
  11. NITROGLYCERIN [Concomitant]

REACTIONS (13)
  - ABDOMINAL PAIN UPPER [None]
  - ANXIETY [None]
  - COLON ADENOMA [None]
  - COLONIC POLYP [None]
  - DYSPHONIA [None]
  - DYSPLASIA [None]
  - ECONOMIC PROBLEM [None]
  - HAEMATOCHEZIA [None]
  - MULTIPLE INJURIES [None]
  - NAUSEA [None]
  - PAIN [None]
  - VOMITING [None]
  - WEIGHT DECREASED [None]
